FAERS Safety Report 24593069 (Version 1)
Quarter: 2024Q4

REPORT INFORMATION
  Report Type: Spontaneous
  Country: IT (occurrence: IT)
  Receive Date: 20241108
  Receipt Date: 20241108
  Transmission Date: 20250114
  Serious: Yes (Death)
  Sender: Teyro Labs
  Company Number: IT-TEYRO-2024-TY-000875

PATIENT

DRUGS (3)
  1. CARBOPLATIN [Suspect]
     Active Substance: CARBOPLATIN
     Indication: Non-small cell lung cancer metastatic
     Dosage: TARGET AREA UNDER THE CURVE [AUC] 6 MIN MG/ ML
     Route: 065
  2. SPARTALIZUMAB [Suspect]
     Active Substance: SPARTALIZUMAB
     Indication: Non-small cell lung cancer
     Dosage: INITIAL DOSE LEVEL 300 MG INTRAVENOUS EVERY 3 WEEKS AND DOSE LEVEL-1 AT 300 MG I.V. Q6W
     Route: 042
  3. PACLITAXEL [Suspect]
     Active Substance: PACLITAXEL
     Indication: Non-small cell lung cancer
     Dosage: UNKNOWN
     Route: 065

REACTIONS (2)
  - General physical health deterioration [Fatal]
  - Off label use [Unknown]
